FAERS Safety Report 5902685-7 (Version None)
Quarter: 2008Q3

REPORT INFORMATION
  Report Type: 
  Country: None (occurrence: None)
  Receive Date: 20080929
  Receipt Date: 20080929
  Transmission Date: 20090109
  Serious: No
  Sender: FDA-Public Use
  Company Number: None

PATIENT
  Age: 95 Year
  Sex: Male
  Weight: 55 kg

DRUGS (10)
  1. LEXAPRO [Suspect]
     Dosage: 10MG QDAY PO
     Route: 048
  2. COUMADIN [Concomitant]
  3. FERROUS SULFATE TAB [Concomitant]
  4. BENADRYL [Concomitant]
  5. DOCUSATE [Concomitant]
  6. VITAMIN B-12 [Concomitant]
  7. VICODIN [Concomitant]
  8. COMBIVENT [Concomitant]
  9. DIGOXIN [Concomitant]
  10. DILTIAZEM HCL [Concomitant]

REACTIONS (2)
  - EYE PAIN [None]
  - LETHARGY [None]
